FAERS Safety Report 9316344 (Version 1)
Quarter: 2013Q2

REPORT INFORMATION
  Report Type: Spontaneous
  Country: DK (occurrence: None)
  Receive Date: 20130521
  Receipt Date: 20130521
  Transmission Date: 20140414
  Serious: Yes (Other)
  Sender: FDA-Public Use
  Company Number: 1713666

PATIENT
  Age: 62 Year
  Sex: Female

DRUGS (4)
  1. DOCETAXEL [Suspect]
     Indication: BREAST CANCER
     Dosage: 1 WEEK
     Route: 042
     Dates: start: 20130125, end: 20130125
  2. TRASTUZUMAB [Suspect]
     Indication: BREAST CANCER
     Dosage: 1 WEEK
     Route: 042
     Dates: start: 20130124
  3. PACLITAXEL [Suspect]
     Indication: BREAST CANCER
     Route: 042
  4. PEGFILGRASTIM [Suspect]
     Indication: PRODUCT USED FOR UNKNOWN INDICATION
     Route: 058
     Dates: start: 20130125

REACTIONS (1)
  - Angioedema [None]
